FAERS Safety Report 6599677-4 (Version None)
Quarter: 2010Q1

REPORT INFORMATION
  Report Type: 
  Country: None (occurrence: None)
  Receive Date: 20100224
  Receipt Date: 20100212
  Transmission Date: 20100710
  Serious: No
  Sender: FDA-Public Use
  Company Number: US-ELI_LILLY_AND_COMPANY-US201002004627

PATIENT
  Sex: Female

DRUGS (4)
  1. CYMBALTA [Suspect]
     Indication: DEPRESSION
     Dosage: 90 MG, UNK
     Dates: start: 20090601
  2. ZYPREXA [Suspect]
     Indication: BIPOLAR I DISORDER
     Dosage: 5 MG, UNK
     Dates: start: 20100101, end: 20100201
  3. PREMARIN [Concomitant]
     Indication: HORMONE REPLACEMENT THERAPY
     Dosage: 0.625 MG, UNK
     Dates: start: 20000101
  4. CLONAZEPAM [Concomitant]
     Indication: ANXIETY
     Dosage: 1 MG, UNK
     Dates: start: 20050101

REACTIONS (3)
  - BREAST DISCHARGE [None]
  - LIVER FUNCTION TEST ABNORMAL [None]
  - RENAL FUNCTION TEST ABNORMAL [None]
